FAERS Safety Report 24349763 (Version 1)
Quarter: 2024Q3

REPORT INFORMATION
  Report Type: Spontaneous
  Country: US (occurrence: US)
  Receive Date: 20240923
  Receipt Date: 20240923
  Transmission Date: 20241017
  Serious: Yes (Other)
  Sender: ORGANON
  Company Number: US-ORGANON-O2409USA001435

PATIENT
  Sex: Female

DRUGS (1)
  1. NEXPLANON [Suspect]
     Active Substance: ETONOGESTREL
     Dosage: 1 IMPLANT
     Route: 059
     Dates: start: 202401, end: 2024

REACTIONS (6)
  - Device dislocation [Recovered/Resolved]
  - Implant site induration [Unknown]
  - Keloid scar [Unknown]
  - Weight decreased [Unknown]
  - Complication associated with device [Recovered/Resolved]
  - Implant site injury [Unknown]

NARRATIVE: CASE EVENT DATE: 20240101
